FAERS Safety Report 16256869 (Version 1)
Quarter: 2019Q2

REPORT INFORMATION
  Report Type: Report from Study
  Country: None (occurrence: US)
  Receive Date: 20190430
  Receipt Date: 20190430
  Transmission Date: 20190711
  Serious: Yes (Other)
  Sender: FDA-Public Use
  Company Number: US-ABBVIE-19S-163-2756559-00

PATIENT
  Age: 68 Year
  Sex: Male

DRUGS (2)
  1. LUPRON [Suspect]
     Active Substance: LEUPROLIDE ACETATE
     Indication: PRODUCT USED FOR UNKNOWN INDICATION
     Route: 050
  2. CASODEX [Concomitant]
     Active Substance: BICALUTAMIDE
     Indication: PRODUCT USED FOR UNKNOWN INDICATION
     Dates: start: 201904

REACTIONS (10)
  - Gait disturbance [Unknown]
  - Anaemia [Unknown]
  - Asthenia [Unknown]
  - Hypertension [Unknown]
  - Pulmonary mass [Unknown]
  - Prostatomegaly [Unknown]
  - Diabetes mellitus [Unknown]
  - Prostate cancer metastatic [Unknown]
  - Intestinal mass [Unknown]
  - Essential hypertension [Unknown]

NARRATIVE: CASE EVENT DATE: 2019
